FAERS Safety Report 19734728 (Version 1)
Quarter: 2021Q3

REPORT INFORMATION
  Report Type: Spontaneous
  Country: GB (occurrence: GB)
  Receive Date: 20210824
  Receipt Date: 20210824
  Transmission Date: 20211014
  Serious: Yes (Disabling, Other)
  Sender: FDA-Public Use
  Company Number: GB-AUROBINDO-AUR-APL-2021-035384

PATIENT
  Age: 48 Year
  Sex: Male
  Weight: 56 kg

DRUGS (4)
  1. AMITRIPTYLINE [Concomitant]
     Active Substance: AMITRIPTYLINE
     Dosage: UNK (TAKE ONE TO TWO TABLETS AT NIGHT)
     Route: 065
     Dates: start: 20210810
  2. DULOXETINE. [Suspect]
     Active Substance: DULOXETINE
     Indication: PARAESTHESIA
     Dosage: UNK (ONE DAILY)
     Route: 048
     Dates: start: 20210721, end: 20210810
  3. AMITRIPTYLINE [Concomitant]
     Active Substance: AMITRIPTYLINE
     Indication: PRODUCT USED FOR UNKNOWN INDICATION
     Dosage: UNK (1?2 AT NIGHT)
     Route: 065
     Dates: start: 20210614
  4. DIAZEPAM. [Concomitant]
     Active Substance: DIAZEPAM
     Indication: PRODUCT USED FOR UNKNOWN INDICATION
     Dosage: UNK (TAKE ONE QDS)
     Route: 065
     Dates: start: 20210602

REACTIONS (1)
  - Adverse drug reaction [Recovered/Resolved with Sequelae]

NARRATIVE: CASE EVENT DATE: 20210721
